FAERS Safety Report 7327143-7 (Version None)
Quarter: 2011Q1

REPORT INFORMATION
  Report Type: 
  Country: None (occurrence: None)
  Receive Date: 20110302
  Receipt Date: 20110224
  Transmission Date: 20110831
  Serious: Yes (Disabling)
  Sender: FDA-Public Use
  Company Number: JP-PFIZER INC-2011040945

PATIENT
  Age: 67 Year
  Sex: Male

DRUGS (1)
  1. LYRICA [Suspect]
     Indication: PAIN
     Dosage: 150 MG/ DAY
     Route: 048
     Dates: start: 20110216, end: 20110217

REACTIONS (3)
  - MUSCULOSKELETAL STIFFNESS [None]
  - SPEECH DISORDER [None]
  - DIZZINESS [None]
